FAERS Safety Report 10799013 (Version 1)
Quarter: 2015Q1

REPORT INFORMATION
  Report Type: Spontaneous
  Country: US (occurrence: US)
  Receive Date: 20150216
  Receipt Date: 20150216
  Transmission Date: 20150721
  Serious: No
  Sender: FDA-Public Use
  Company Number: US-ALLERGAN-1404037US

PATIENT
  Age: 84 Year
  Sex: Female
  Weight: 68 kg

DRUGS (4)
  1. ANASTROZOL [Concomitant]
     Active Substance: ANASTROZOLE
     Indication: OESTROGEN THERAPY
     Dosage: UNK UNK, QD
  2. SYNTHROID [Concomitant]
     Active Substance: LEVOTHYROXINE SODIUM
     Dosage: 88 MG, QD
  3. ZETIA [Concomitant]
     Active Substance: EZETIMIBE
     Indication: BLOOD CHOLESTEROL
     Dosage: UNK UNK, QD
  4. RESTASIS [Suspect]
     Active Substance: CYCLOSPORINE
     Indication: DRY EYE
     Dosage: 2 GTT PER EYE, QD
     Route: 047
     Dates: start: 201312, end: 201401

REACTIONS (2)
  - Ocular hyperaemia [Unknown]
  - Eye irritation [Not Recovered/Not Resolved]

NARRATIVE: CASE EVENT DATE: 201312
